FAERS Safety Report 7032998-X (Version None)
Quarter: 2010Q4

REPORT INFORMATION
  Report Type: 
  Country: None (occurrence: None)
  Receive Date: 20101007
  Receipt Date: 20100928
  Transmission Date: 20110411
  Serious: Yes (Other)
  Sender: FDA-Public Use
  Company Number: BE-PFIZER INC-2010119134

PATIENT
  Age: 47 Year
  Sex: Female
  Weight: 62.4 kg

DRUGS (3)
  1. SOSTILAR [Suspect]
     Indication: PROLACTINOMA
     Dosage: 0.25 MG, 2X/DAY
     Route: 048
     Dates: start: 20070914
  2. ZOCOR [Concomitant]
     Dosage: 20 MG, 1X/DAY
     Route: 048
     Dates: start: 20070101
  3. LEVOTHYROXINE SODIUM [Concomitant]
     Dosage: 100 MG, 1X/DAY
     Route: 048
     Dates: start: 20080101

REACTIONS (5)
  - AMNESIA [None]
  - BURSITIS [None]
  - HYPERTENSION [None]
  - JOINT STIFFNESS [None]
  - PERICARDITIS [None]
